FAERS Safety Report 5107758-7 (Version None)
Quarter: 2006Q3

REPORT INFORMATION
  Report Type: 
  Country: None (occurrence: None)
  Receive Date: 20060914
  Receipt Date: 20060901
  Transmission Date: 20061208
  Serious: Yes (Hospitalization)
  Sender: FDA-Public Use
  Company Number: 2006095937

PATIENT
  Age: 75 Year
  Sex: Female
  Weight: 85 kg

DRUGS (10)
  1. SUTENT [Suspect]
     Indication: METASTATIC RENAL CELL CARCINOMA
     Dosage: 50 MG (50 MG, 1 IN 1 D), ORAL
     Route: 048
     Dates: start: 20060301, end: 20060803
  2. FERRO SANOL DUODENAL (AMINOACETIC ACID, FERROUS SULFATE) [Concomitant]
  3. ALLOPURINOL [Concomitant]
  4. LOPERAMIDE HCL [Concomitant]
  5. BELOC-ZOK MITE (METOPROLOL SUCCINATE) [Concomitant]
  6. LEVOTHYROXINE SODIUM [Concomitant]
  7. NORVASC [Concomitant]
  8. DIMENHYDRINATE [Concomitant]
  9. NOVALGIN (METAMIZOLE SODIUM) [Concomitant]
  10. EMBOLEX [Concomitant]

REACTIONS (5)
  - DIARRHOEA [None]
  - DRUG TOXICITY [None]
  - HAEMOGLOBIN DECREASED [None]
  - HAEMOLYSIS [None]
  - HEPATITIS TOXIC [None]
